FAERS Safety Report 15293847 (Version 2)
Quarter: 2018Q3

REPORT INFORMATION
  Report Type: Spontaneous
  Country: IT (occurrence: IT)
  Receive Date: 20180820
  Receipt Date: 20180823
  Transmission Date: 20181010
  Serious: Yes (Other)
  Sender: FDA-Public Use
  Company Number: IT-TEVA-2018-IT-944028

PATIENT
  Age: 81 Year
  Sex: Female
  Weight: 83 kg

DRUGS (6)
  1. OROTRE [Concomitant]
     Route: 048
  2. ALENDRONATE SODIUM. [Concomitant]
     Active Substance: ALENDRONATE SODIUM
     Route: 048
  3. TRAMADOL HYDROCHLORIDE. [Suspect]
     Active Substance: TRAMADOL HYDROCHLORIDE
     Indication: BACK PAIN
     Dosage: 200 MILLIGRAM DAILY;
     Route: 048
     Dates: end: 20180724
  4. FEMARA 2,5 MG COMPRESSE RIVESTITE CON FILM [Concomitant]
     Indication: HORMONE THERAPY
     Route: 048
  5. BISOPROLOL FUMARATE. [Concomitant]
     Active Substance: BISOPROLOL FUMARATE
     Route: 048
  6. PARACETAMOL [Concomitant]
     Active Substance: ACETAMINOPHEN
     Route: 048

REACTIONS (1)
  - Aphasia [Recovering/Resolving]

NARRATIVE: CASE EVENT DATE: 20180724
